FAERS Safety Report 5081377-3 (Version None)
Quarter: 2006Q3

REPORT INFORMATION
  Report Type: 
  Country: None (occurrence: None)
  Receive Date: 20060720
  Receipt Date: 20060117
  Transmission Date: 20061208
  Serious: Yes (Other)
  Sender: FDA-Public Use
  Company Number: 2006008965

PATIENT
  Age: 81 Year
  Sex: Female
  Weight: 55.7924 kg

DRUGS (6)
  1. CELEBREX [Suspect]
     Indication: OSTEOARTHRITIS
     Dosage: (DAILY INTERVAL: EVERY DAY),ORAL
     Route: 048
     Dates: start: 20051201, end: 20051201
  2. ADVIL [Concomitant]
  3. ZOCOR [Concomitant]
  4. TENORMIN [Concomitant]
  5. ISORDIL [Concomitant]
  6. CARDIZEM [Concomitant]

REACTIONS (1)
  - BLOOD PRESSURE INCREASED [None]
